FAERS Safety Report 23404175 (Version 1)
Quarter: 2024Q1

REPORT INFORMATION
  Report Type: Spontaneous
  Country: IT (occurrence: IT)
  Receive Date: 20240116
  Receipt Date: 20240116
  Transmission Date: 20240410
  Serious: Yes (Disabling)
  Sender: FDA-Public Use
  Company Number: None

PATIENT
  Age: 4 Month
  Sex: Male
  Weight: 5.3 kg

DRUGS (2)
  1. ZOLGENSMA [Suspect]
     Active Substance: ONASEMNOGENE ABEPARVOVEC-XIOI
     Indication: Spinal muscular atrophy
     Dosage: 30.3 ML
     Route: 042
     Dates: start: 20231201, end: 20231201
  2. SINTREDIUS [Concomitant]
     Indication: Steroid therapy
     Dosage: 6 MG
     Route: 048

REACTIONS (3)
  - Dysphagia [Recovered/Resolved with Sequelae]
  - Decreased appetite [Recovered/Resolved with Sequelae]
  - Respiratory fatigue [Recovered/Resolved with Sequelae]

NARRATIVE: CASE EVENT DATE: 20231210
